FAERS Safety Report 23388111 (Version 1)
Quarter: 2024Q1

REPORT INFORMATION
  Report Type: Spontaneous
  Country: CN (occurrence: CN)
  Receive Date: 20240110
  Receipt Date: 20240110
  Transmission Date: 20240409
  Serious: Yes (Hospitalization, Other)
  Sender: FDA-Public Use
  Company Number: CN-PFIZER INC-PV202300209671

PATIENT
  Age: 9 Year
  Sex: Male
  Weight: 36 kg

DRUGS (3)
  1. ZITHROMAX [Suspect]
     Active Substance: AZITHROMYCIN DIHYDRATE
     Indication: Tonsillitis
     Dosage: 300 MG, 1X/DAY
     Route: 048
     Dates: start: 20231225, end: 20231225
  2. AMBROXOL HYDROCHLORIDE\CLENBUTEROL [Suspect]
     Active Substance: AMBROXOL HYDROCHLORIDE\CLENBUTEROL
     Indication: Productive cough
     Dosage: 15 ML, 2X/DAY
     Route: 048
     Dates: start: 20231225, end: 20231225
  3. AMBROXOL HYDROCHLORIDE\CLENBUTEROL [Suspect]
     Active Substance: AMBROXOL HYDROCHLORIDE\CLENBUTEROL
     Indication: Dyspnoea

REACTIONS (5)
  - Rash [Recovering/Resolving]
  - Rash maculo-papular [Recovering/Resolving]
  - Skin lesion [Unknown]
  - Pruritus [Recovering/Resolving]
  - Off label use [Unknown]

NARRATIVE: CASE EVENT DATE: 20231225
